FAERS Safety Report 16749401 (Version 1)
Quarter: 2019Q3

REPORT INFORMATION
  Report Type: Spontaneous
  Country: US (occurrence: US)
  Receive Date: 20190828
  Receipt Date: 20190828
  Transmission Date: 20191005
  Serious: No
  Sender: FDA-Public Use
  Company Number: US-ASTRAZENECA-2019SF09479

PATIENT
  Sex: Female

DRUGS (14)
  1. BUDESONIDE. [Suspect]
     Active Substance: BUDESONIDE
     Indication: COLITIS MICROSCOPIC
     Route: 055
     Dates: start: 2018
  2. INBRIJA [Suspect]
     Active Substance: LEVODOPA
     Indication: PARKINSON^S DISEASE
     Route: 055
     Dates: start: 20190520
  3. CLONIDINE. [Suspect]
     Active Substance: CLONIDINE
     Indication: HYPERTENSION
     Route: 048
  4. LANSOPRAZOL [Concomitant]
     Active Substance: LANSOPRAZOLE
     Route: 048
  5. ESCITALOPRAM [Concomitant]
     Active Substance: ESCITALOPRAM OXALATE
     Route: 065
  6. PARCOPA [Concomitant]
     Active Substance: CARBIDOPA\LEVODOPA
     Dosage: 25/100 MG
     Route: 048
  7. LEVOTHYROXIN [Concomitant]
     Active Substance: LEVOTHYROXINE
     Route: 048
  8. LORATADINE. [Concomitant]
     Active Substance: LORATADINE
     Dosage: AS REQUIRED
     Route: 048
  9. DIAZEPAM. [Concomitant]
     Active Substance: DIAZEPAM
  10. ETHACRYNIC ACID. [Concomitant]
     Active Substance: ETHACRYNIC ACID
     Route: 048
  11. ROSUVASTATIN. [Suspect]
     Active Substance: ROSUVASTATIN
     Route: 048
  12. INBRIJA [Suspect]
     Active Substance: LEVODOPA
     Indication: PARKINSON^S DISEASE
     Route: 055
     Dates: start: 20190520
  13. MESALAMINE. [Concomitant]
     Active Substance: MESALAMINE
     Route: 048
  14. MIRALAX [Concomitant]
     Active Substance: POLYETHYLENE GLYCOL 3350
     Dosage: AS REQUIRED
     Route: 048

REACTIONS (8)
  - Peripheral swelling [Unknown]
  - Dyspnoea [Not Recovered/Not Resolved]
  - Dysgraphia [Not Recovered/Not Resolved]
  - Hypotension [Unknown]
  - Chest discomfort [Not Recovered/Not Resolved]
  - Gait disturbance [Unknown]
  - Muscular weakness [Not Recovered/Not Resolved]
  - Throat tightness [Not Recovered/Not Resolved]
